FAERS Safety Report 20760133 (Version 1)
Quarter: 2022Q2

REPORT INFORMATION
  Report Type: Report from Study
  Country: BR (occurrence: BR)
  Receive Date: 20220428
  Receipt Date: 20220428
  Transmission Date: 20220720
  Serious: Yes (Other)
  Sender: FDA-Public Use
  Company Number: BR-ABBOTT-2022A-1347921

PATIENT
  Sex: Female
  Weight: 77 kg

DRUGS (1)
  1. SYNTHROID [Suspect]
     Active Substance: LEVOTHYROXINE SODIUM
     Indication: Hypothyroidism
     Dosage: DAILY DOSE: IN THE MORNING, 30 MINUTES BEFORE BREAKFAST.
     Route: 048

REACTIONS (5)
  - Thyroidectomy [Recovered/Resolved]
  - Spinal disorder [Recovered/Resolved]
  - Body height decreased [Unknown]
  - Product dose omission issue [Unknown]
  - Dizziness [Unknown]

NARRATIVE: CASE EVENT DATE: 19891103
